FAERS Safety Report 19067877 (Version 1)
Quarter: 2021Q1

REPORT INFORMATION
  Report Type: Spontaneous
  Country: TW (occurrence: TW)
  Receive Date: 20210329
  Receipt Date: 20210329
  Transmission Date: 20210420
  Serious: Yes (Hospitalization)
  Sender: FDA-Public Use
  Company Number: TW-BAYER-2021-106042

PATIENT
  Sex: Male

DRUGS (1)
  1. ULTRAVIST [Suspect]
     Active Substance: IOPROMIDE
     Indication: CARDIOVASCULAR EXAMINATION
     Dosage: 60?80 CC, ONCE
     Dates: start: 2020, end: 2020

REACTIONS (5)
  - Nasal congestion [None]
  - Eye swelling [None]
  - Urticaria [None]
  - Dyspnoea [None]
  - Pharyngeal oedema [None]

NARRATIVE: CASE EVENT DATE: 20201202
